FAERS Safety Report 10045442 (Version 1)
Quarter: 2014Q1

REPORT INFORMATION
  Report Type: Spontaneous
  Country: US (occurrence: None)
  Receive Date: 20140306
  Receipt Date: 20140306
  Transmission Date: 20141002
  Serious: Yes (Hospitalization)
  Sender: FDA-Public Use
  Company Number: 163-21880-13061014

PATIENT
  Age: 73 Year
  Sex: Female

DRUGS (9)
  1. REVLIMID (LENALIDOMIDE) (10 MILLIGRAM, CAPSULES) [Suspect]
     Indication: PLASMA CELL MYELOMA
     Dosage: 10 MG, 21 IN 21 D, PO
     Route: 048
     Dates: start: 20130314
  2. ALBUTEROL SULFATE (SALBUTAMOL SULFATE) [Concomitant]
  3. AMLODIPINE BESYLATE (AMLODIPINE BESILATE) [Concomitant]
  4. ASPIRIN (ACETYLSALICYLIC ACID) [Concomitant]
  5. ATORVASTATIN CALCIUM (ATORVASTATIN CALCIUM) [Concomitant]
  6. AVELOX (MOXIFLOXACIN HYDROCHLORIDE) [Concomitant]
  7. LABETALOL HCL (LABETALOL HYDROCHLORIDE) [Concomitant]
  8. LASIX (FUROSEMIDE) [Concomitant]
  9. LOSARTAN POTASSIUM [Concomitant]

REACTIONS (2)
  - Dehydration [None]
  - Cystitis [None]
